FAERS Safety Report 25785673 (Version 1)
Quarter: 2025Q3

REPORT INFORMATION
  Report Type: Spontaneous
  Country: US (occurrence: US)
  Receive Date: 20250910
  Receipt Date: 20250910
  Transmission Date: 20251020
  Serious: Yes (Hospitalization, Other)
  Sender: CSL BEHRING
  Company Number: US-BEH-2025218156

PATIENT
  Age: 64 Year
  Sex: Male
  Weight: 119.1 kg

DRUGS (2)
  1. MIRCERA [Suspect]
     Active Substance: METHOXY POLYETHYLENE GLYCOL-EPOETIN BETA
     Indication: Nephrogenic anaemia
     Route: 040
     Dates: start: 20250704, end: 20250903
  2. VENOFER [Concomitant]
     Active Substance: IRON SUCROSE
     Dates: start: 20250618

REACTIONS (5)
  - Drug hypersensitivity [Unknown]
  - Dizziness [Unknown]
  - Hypotension [Unknown]
  - Unresponsive to stimuli [Unknown]
  - Cyanosis [Unknown]

NARRATIVE: CASE EVENT DATE: 20250903
